FAERS Safety Report 9010429 (Version 1)
Quarter: 2013Q1

REPORT INFORMATION
  Report Type: Spontaneous
  Country: US (occurrence: US)
  Receive Date: 20130109
  Receipt Date: 20130109
  Transmission Date: 20140127
  Serious: Yes (Death)
  Sender: FDA-Public Use
  Company Number: US-ASTRAZENECA-2013SE01492

PATIENT
  Age: 57 Year
  Sex: Male

DRUGS (7)
  1. LISINOPRIL [Suspect]
     Route: 048
  2. TRAMADOL [Suspect]
     Route: 048
  3. DIAZEPAM [Suspect]
     Route: 048
  4. DILTIAZEM [Suspect]
     Route: 065
  5. COCAINE [Suspect]
     Route: 065
  6. CARVEDILOL [Suspect]
     Route: 065
  7. AMIODARONE [Suspect]
     Route: 065

REACTIONS (2)
  - Completed suicide [Fatal]
  - Toxicity to various agents [Fatal]
